FAERS Safety Report 6936140-2 (Version None)
Quarter: 2010Q3

REPORT INFORMATION
  Report Type: 
  Country: None (occurrence: None)
  Receive Date: 20100819
  Receipt Date: 20100819
  Transmission Date: 20110219
  Serious: No
  Sender: FDA-Public Use
  Company Number: None

PATIENT
  Age: 67 Year
  Sex: Female
  Weight: 79.3795 kg

DRUGS (1)
  1. LANTUS [Suspect]
     Indication: BLOOD GLUCOSE ABNORMAL
     Dosage: 18 UNITS PER DAY 1X PER DAY
     Dates: start: 20090601, end: 20090630

REACTIONS (1)
  - PAIN [None]
